FAERS Safety Report 22080153 (Version 2)
Quarter: 2023Q1

REPORT INFORMATION
  Report Type: Spontaneous
  Country: US (occurrence: US)
  Receive Date: 20230309
  Receipt Date: 20230324
  Transmission Date: 20230417
  Serious: Yes (Hospitalization, Other)
  Sender: FDA-Public Use
  Company Number: US-TEVA-2023-US-2862405

PATIENT
  Age: 12 Year
  Sex: Male

DRUGS (10)
  1. SUNITINIB [Suspect]
     Active Substance: SUNITINIB
     Indication: Pancreatic neuroendocrine tumour metastatic
     Route: 065
  2. SUNITINIB [Suspect]
     Active Substance: SUNITINIB
     Indication: Cushing^s syndrome
  3. CABERGOLINE [Suspect]
     Active Substance: CABERGOLINE
     Indication: Pancreatic neuroendocrine tumour metastatic
     Route: 065
  4. CABERGOLINE [Suspect]
     Active Substance: CABERGOLINE
     Indication: Cushing^s syndrome
  5. SPIRONOLACTONE [Suspect]
     Active Substance: SPIRONOLACTONE
     Indication: Pancreatic neuroendocrine tumour metastatic
     Route: 065
  6. SPIRONOLACTONE [Suspect]
     Active Substance: SPIRONOLACTONE
     Indication: Cushing^s syndrome
  7. METYRAPONE [Suspect]
     Active Substance: METYRAPONE
     Indication: Pancreatic neuroendocrine tumour metastatic
     Route: 065
  8. METYRAPONE [Suspect]
     Active Substance: METYRAPONE
     Indication: Cushing^s syndrome
  9. LANREOTIDE [Suspect]
     Active Substance: LANREOTIDE
     Indication: Pancreatic neuroendocrine tumour metastatic
     Route: 065
  10. LANREOTIDE [Suspect]
     Active Substance: LANREOTIDE
     Indication: Cushing^s syndrome

REACTIONS (2)
  - Drug ineffective [Unknown]
  - Rebound effect [Unknown]
